FAERS Safety Report 17282191 (Version 2)
Quarter: 2020Q1

REPORT INFORMATION
  Report Type: Report from Study
  Country: GB (occurrence: GB)
  Receive Date: 20200117
  Receipt Date: 20200129
  Transmission Date: 20200409
  Serious: Yes (Hospitalization)
  Sender: FDA-Public Use
  Company Number: GB-ROCHE-1545419

PATIENT
  Age: 60 Year
  Sex: Female
  Weight: 106 kg

DRUGS (23)
  1. EPIRUBICIN [Suspect]
     Active Substance: EPIRUBICIN
     Indication: HER-2 POSITIVE BREAST CANCER
     Route: 065
     Dates: start: 20141203
  2. ONDANSETRON [Concomitant]
     Active Substance: ONDANSETRON
     Dosage: INDICATION: ANTI EMETIC.
     Route: 065
     Dates: start: 20141203, end: 20150130
  3. CYCLIZINE [Concomitant]
     Active Substance: CYCLIZINE
     Dosage: INDICATION: ANTI EMETIC
     Route: 065
     Dates: start: 20150128, end: 20150201
  4. 5-FLUOROURACIL [FLUOROURACIL] [Suspect]
     Active Substance: FLUOROURACIL
     Indication: HER-2 POSITIVE BREAST CANCER
     Route: 065
     Dates: start: 20141203
  5. DIFFLAM [Concomitant]
     Active Substance: BENZYDAMINE HYDROCHLORIDE
     Indication: STOMATITIS
     Route: 065
     Dates: start: 20150114, end: 201502
  6. PARACETAMOL [Concomitant]
     Active Substance: ACETAMINOPHEN
     Indication: INFUSION RELATED REACTION
     Dosage: INDICATION: ANALGESIC AND FOR FLU LIKE SYMPTOMS
     Route: 065
     Dates: start: 20150224
  7. DOXYCYCLINE. [Concomitant]
     Active Substance: DOXYCYCLINE
     Dosage: INDICATION: ITCHY RASH TO SCALP AND FACE
     Route: 065
     Dates: start: 201507, end: 201507
  8. LENOGRASTIM [Concomitant]
     Active Substance: LENOGRASTIM
     Dosage: INDICATION: GRANULOCYTE COLONY STIMULATING FACTOR
     Route: 065
     Dates: start: 20141208, end: 20150204
  9. ZOPICLONE [Concomitant]
     Active Substance: ZOPICLONE
     Indication: INSOMNIA
     Route: 065
     Dates: start: 20141208, end: 2015
  10. HYDROCORTISONE. [Concomitant]
     Active Substance: HYDROCORTISONE
     Dosage: ITCHY RASH TO SCALP AND FACE
     Route: 065
     Dates: start: 201507
  11. DEXAMETHASONE. [Concomitant]
     Active Substance: DEXAMETHASONE
     Indication: CHEMOTHERAPY
     Route: 065
     Dates: start: 20141203
  12. CYCLOPHOSPHAMIDE. [Suspect]
     Active Substance: CYCLOPHOSPHAMIDE
     Indication: HER-2 POSITIVE BREAST CANCER
     Route: 065
     Dates: start: 20141203
  13. CLOPIDOGREL [Concomitant]
     Active Substance: CLOPIDOGREL BISULFATE
     Indication: ANTICOAGULANT THERAPY
     Route: 065
     Dates: start: 201405
  14. DERMOVATE [Concomitant]
     Active Substance: CLOBETASOL
     Dosage: FOR ITCHY SCALP
     Route: 065
     Dates: start: 201507, end: 201507
  15. DOMPERIDONE [Concomitant]
     Active Substance: DOMPERIDONE
     Dosage: INDICATION: ANTI EMETIC.
     Route: 065
     Dates: start: 20141203, end: 20150204
  16. CLOTRIMAZOLE. [Concomitant]
     Active Substance: CLOTRIMAZOLE
     Dosage: USUALLY GIVEN FOR VAGINAL THRUSH. PT DID NOT SHARE THIS INFORMATION WITH THE RESEARCH TEAM
     Route: 065
     Dates: start: 20141211, end: 201412
  17. APREPITANT. [Concomitant]
     Active Substance: APREPITANT
     Dosage: INDICATION: ANTI EMETIC.
     Route: 065
     Dates: start: 20141103, end: 20150130
  18. METOPROLOL. [Concomitant]
     Active Substance: METOPROLOL
     Indication: HYPERTENSION
     Route: 065
     Dates: start: 2010
  19. STEMETIL [PROCHLORPERAZINE] [Concomitant]
     Active Substance: PROCHLORPERAZINE
     Indication: DIZZINESS
     Dosage: ANTI EMETIC
     Route: 065
     Dates: start: 20141117, end: 201412
  20. PERTUZUMAB. [Suspect]
     Active Substance: PERTUZUMAB
     Indication: HER-2 POSITIVE BREAST CANCER
     Dosage: LOADING DOSE?DATE OF MOST RECENT DOSE (840 MG) OF PERTUZUMAB PRIOR TO AE ONSET: 18/FEB/2015
     Route: 042
     Dates: start: 20150218
  21. PERTUZUMAB. [Suspect]
     Active Substance: PERTUZUMAB
     Dosage: MAINTANENCE DOSE (420 MG)
     Route: 042
  22. TRASTUZUMAB EMTANSINE [Suspect]
     Active Substance: ADO-TRASTUZUMAB EMTANSINE
     Indication: HER-2 POSITIVE BREAST CANCER
     Dosage: ONCE
     Route: 042
     Dates: start: 20150218
  23. PARACETAMOL [Concomitant]
     Active Substance: ACETAMINOPHEN
     Route: 065
     Dates: start: 20150218, end: 20150218

REACTIONS (3)
  - Abdominal pain [Recovered/Resolved]
  - Pyrexia [Recovered/Resolved]
  - Pyrexia [Recovered/Resolved]

NARRATIVE: CASE EVENT DATE: 20150219
